FAERS Safety Report 5008963-0 (Version None)
Quarter: 2006Q2

REPORT INFORMATION
  Report Type: 
  Country: None (occurrence: None)
  Receive Date: 20060523
  Receipt Date: 20060323
  Transmission Date: 20061013
  Serious: Yes (Hospitalization)
  Sender: FDA-Public Use
  Company Number: 2006AP01479

PATIENT
  Age: 70 Year
  Sex: Male
  Weight: 63 kg

DRUGS (4)
  1. CRESTOR [Suspect]
     Indication: HYPERCHOLESTEROLAEMIA
     Route: 048
     Dates: start: 20050902, end: 20050916
  2. MAINTATE [Concomitant]
     Route: 048
  3. BUFFERIN [Concomitant]
     Route: 048
  4. GASTER D [Concomitant]
     Route: 048

REACTIONS (1)
  - PYREXIA [None]
